FAERS Safety Report 11090413 (Version 1)
Quarter: 2015Q2

REPORT INFORMATION
  Report Type: Spontaneous
  Country: US (occurrence: None)
  Receive Date: 20150504
  Receipt Date: 20150504
  Transmission Date: 20150821
  Serious: Yes (Hospitalization, Other)
  Sender: FDA-Public Use
  Company Number: None

PATIENT
  Age: 51 Year
  Sex: Male
  Weight: 108 kg

DRUGS (1)
  1. ASPIRIN. [Suspect]
     Active Substance: ASPIRIN
     Indication: CARDIOVASCULAR EVENT PROPHYLAXIS
     Dosage: MG
     Route: 048
     Dates: start: 20130416, end: 20150209

REACTIONS (5)
  - Transient ischaemic attack [None]
  - Cerebral haematoma [None]
  - Cerebrovascular accident [None]
  - Blood pressure diastolic increased [None]
  - Refusal of treatment by patient [None]

NARRATIVE: CASE EVENT DATE: 20150209
